FAERS Safety Report 25440056 (Version 1)
Quarter: 2025Q2

REPORT INFORMATION
  Report Type: Spontaneous
  Country: US (occurrence: US)
  Receive Date: 20250616
  Receipt Date: 20250616
  Transmission Date: 20250716
  Serious: Yes (Other)
  Sender: PFIZER
  Company Number: US-PFIZER INC-PV202500070714

PATIENT
  Age: 69 Year
  Sex: Female

DRUGS (1)
  1. NURTEC ODT [Suspect]
     Active Substance: RIMEGEPANT SULFATE
     Indication: Headache
     Dosage: 1 PILL EVERY OTHER DAY
     Route: 048

REACTIONS (6)
  - Renal failure [Unknown]
  - Cataract [Unknown]
  - Nephrolithiasis [Unknown]
  - Back pain [Not Recovered/Not Resolved]
  - Myalgia [Not Recovered/Not Resolved]
  - Skin discolouration [Unknown]
